FAERS Safety Report 24579566 (Version 2)
Quarter: 2025Q2

REPORT INFORMATION
  Report Type: Spontaneous
  Country: CA (occurrence: None)
  Receive Date: 20241105
  Receipt Date: 20250515
  Transmission Date: 20250717
  Serious: Yes (Other)
  Sender: ORION
  Company Number: CA-PFIZER INC-202400290721

PATIENT
  Age: 5 Year
  Sex: Male

DRUGS (4)
  1. METHOTREXATE [Suspect]
     Active Substance: METHOTREXATE
     Indication: Uveitis
     Dates: start: 2022
  2. ABRILADA [Concomitant]
     Active Substance: ADALIMUMAB-AFZB
     Indication: Uveitis
     Dates: start: 20241107
  3. ABRILADA [Concomitant]
     Active Substance: ADALIMUMAB-AFZB
     Dates: start: 20250312
  4. ABRILADA [Concomitant]
     Active Substance: ADALIMUMAB-AFZB
     Dosage: AFTER 8 WEEKS AND 2 DAYS
     Dates: start: 20250509

REACTIONS (3)
  - Uveitis [Unknown]
  - Product use in unapproved indication [Unknown]
  - Product use issue [Unknown]

NARRATIVE: CASE EVENT DATE: 20220101
